FAERS Safety Report 14157719 (Version 1)
Quarter: 2017Q4

REPORT INFORMATION
  Report Type: Report from Study
  Country: US (occurrence: US)
  Receive Date: 20171103
  Receipt Date: 20171103
  Transmission Date: 20180321
  Serious: No
  Sender: FDA-Public Use
  Company Number: US-PUMA BIOTECHNOLOGY, LTD.-2017US013208

PATIENT

DRUGS (1)
  1. NERLYNX [Suspect]
     Active Substance: NERATINIB
     Indication: BREAST CANCER MALE
     Dosage: 6 DF, DAILY
     Route: 048
     Dates: start: 201709

REACTIONS (7)
  - Constipation [Unknown]
  - Abdominal distension [Unknown]
  - Dizziness [Unknown]
  - Onychoclasis [Unknown]
  - Fatigue [Unknown]
  - Abdominal tenderness [Unknown]
  - Nausea [Unknown]

NARRATIVE: CASE EVENT DATE: 201709
